FAERS Safety Report 4449910-X (Version None)
Quarter: 2004Q3

REPORT INFORMATION
  Report Type: 
  Country: None (occurrence: None)
  Receive Date: 20040803
  Receipt Date: 20040412
  Transmission Date: 20050211
  Serious: Yes (Hospitalization)
  Sender: FDA-Public Use
  Company Number: 2004205760US

PATIENT
  Age: 74 Year
  Sex: Male

DRUGS (5)
  1. CAMPTOSAR [Suspect]
     Indication: OESOPHAGEAL CARCINOMA
     Dosage: SEE IMAGE
     Route: 042
     Dates: start: 20040219
  2. COUMADIN [Concomitant]
  3. ALLOPURINOL [Concomitant]
  4. RESERPINE [Concomitant]
  5. PERCOCET (OXYCOCONE HYDROCHLORIDE, OXYCODONE TEREPHTHALATE) [Concomitant]

REACTIONS (1)
  - DEEP VEIN THROMBOSIS [None]
